FAERS Safety Report 7219689-7 (Version None)
Quarter: 2011Q1

REPORT INFORMATION
  Report Type: 
  Country: None (occurrence: None)
  Receive Date: 20110111
  Receipt Date: 20110102
  Transmission Date: 20110831
  Serious: Yes (Other)
  Sender: FDA-Public Use
  Company Number: PHHY2011GR00501

PATIENT
  Sex: Male

DRUGS (3)
  1. EXELON [Suspect]
     Indication: AMNESIA
     Dosage: 4.6 MG, UNK
     Route: 062
     Dates: start: 20101229
  2. MEMODRIN [Concomitant]
     Indication: BENIGN PROSTATIC HYPERPLASIA
  3. PRILOSEC [Concomitant]
     Indication: BENIGN PROSTATIC HYPERPLASIA
     Dosage: UNK

REACTIONS (3)
  - DIARRHOEA HAEMORRHAGIC [None]
  - MALAISE [None]
  - ABDOMINAL PAIN [None]
